FAERS Safety Report 16129565 (Version 1)
Quarter: 2019Q1

REPORT INFORMATION
  Report Type: Spontaneous
  Country: US (occurrence: US)
  Receive Date: 20190328
  Receipt Date: 20190328
  Transmission Date: 20190418
  Serious: No
  Sender: FDA-Public Use
  Company Number: US-TEVA-2019-US-1020546

PATIENT
  Age: 79 Year
  Sex: Female

DRUGS (1)
  1. GABAPENTIN CAPSULE [Suspect]
     Active Substance: GABAPENTIN
     Route: 065

REACTIONS (2)
  - Dyspnoea [Unknown]
  - Weight increased [Unknown]
